FAERS Safety Report 6810546-4 (Version None)
Quarter: 2010Q2

REPORT INFORMATION
  Report Type: 
  Country: None (occurrence: None)
  Receive Date: 20100630
  Receipt Date: 20100517
  Transmission Date: 20101027
  Serious: Yes (Other)
  Sender: FDA-Public Use
  Company Number: US-BAXTER-2009BH018730

PATIENT
  Age: 49 Year
  Sex: Female

DRUGS (4)
  1. HEPARIN SODIUM [Suspect]
     Indication: CATHETERISATION VENOUS
     Route: 042
     Dates: start: 20080215, end: 20080215
  2. TOPAMAX [Concomitant]
     Indication: DRUG USE FOR UNKNOWN INDICATION
     Route: 065
  3. TEGRETOL [Concomitant]
     Indication: DRUG USE FOR UNKNOWN INDICATION
     Route: 065
  4. FEMARA [Concomitant]
     Indication: DRUG USE FOR UNKNOWN INDICATION
     Route: 065

REACTIONS (11)
  - ABDOMINAL PAIN [None]
  - ANAEMIA [None]
  - BURNING SENSATION [None]
  - DIARRHOEA [None]
  - HAEMORRHAGE [None]
  - HAEMORRHAGIC DISORDER [None]
  - HYPERHIDROSIS [None]
  - LYMPHOEDEMA [None]
  - MENTAL STATUS CHANGES [None]
  - PHARYNGEAL OEDEMA [None]
  - THROAT TIGHTNESS [None]
